FAERS Safety Report 8967064 (Version 1)
Quarter: 2012Q4

REPORT INFORMATION
  Report Type: 
  Country: GB (occurrence: GB)
  Receive Date: 20121217
  Receipt Date: 20121217
  Transmission Date: 20130627
  Serious: Yes (Hospitalization, Other)
  Sender: FDA-Public Use
  Company Number: PHFR2001GB02998

PATIENT
  Age: 45 Year
  Sex: Female

DRUGS (3)
  1. CLOZARIL [Suspect]
     Indication: SCHIZOPHRENIA
     Dosage: 300 mg, daily
     Route: 048
     Dates: start: 20010925, end: 20011024
  2. PAROXETINE HYDROCHLORIDE [Suspect]
     Dosage: 20 mg, UNK
     Route: 048
  3. MOTRIN [Suspect]
     Indication: ARTHRITIS
     Dosage: 1200 mg, Daily
     Route: 048

REACTIONS (12)
  - Drug-induced liver injury [Recovering/Resolving]
  - Hepatic function abnormal [Recovered/Resolved]
  - Blood alkaline phosphatase increased [Recovering/Resolving]
  - Alanine aminotransferase increased [Recovering/Resolving]
  - Gamma-glutamyltransferase increased [Recovering/Resolving]
  - Blood bilirubin increased [Recovering/Resolving]
  - Asthenia [Recovering/Resolving]
  - Dehydration [Recovered/Resolved]
  - Diarrhoea [Recovered/Resolved]
  - Hypomania [Recovered/Resolved]
  - Hyperglycaemia [Recovered/Resolved]
  - Blood glucose increased [Unknown]
